FAERS Safety Report 9260444 (Version 1)
Quarter: 2013Q2

REPORT INFORMATION
  Report Type: Spontaneous
  Country: US (occurrence: US)
  Receive Date: 20130429
  Receipt Date: 20130429
  Transmission Date: 20140414
  Serious: No
  Sender: FDA-Public Use
  Company Number: US-PFIZER INC-2013130178

PATIENT
  Age: 55 Year
  Sex: Female
  Weight: 70.3 kg

DRUGS (1)
  1. ADVIL [Suspect]
     Indication: HEADACHE
     Dosage: ONE OR TWO TABLETS AS NEEDED
     Route: 048
     Dates: start: 1970, end: 201304

REACTIONS (5)
  - Poor quality drug administered [Unknown]
  - Sinusitis [Recovering/Resolving]
  - Gastric disorder [Recovered/Resolved]
  - Malaise [Recovered/Resolved]
  - Tablet physical issue [Recovering/Resolving]
